FAERS Safety Report 9774315 (Version 1)
Quarter: 2013Q4

REPORT INFORMATION
  Report Type: Spontaneous
  Country: US (occurrence: US)
  Receive Date: 20131220
  Receipt Date: 20131220
  Transmission Date: 20140711
  Serious: Yes (Other)
  Sender: FDA-Public Use
  Company Number: US-BAYER-2013-152364

PATIENT
  Sex: Female

DRUGS (1)
  1. AVELOX [Suspect]
     Indication: BETA HAEMOLYTIC STREPTOCOCCAL INFECTION
     Dosage: UNK
     Route: 048
     Dates: start: 20090714, end: 20090718

REACTIONS (27)
  - Visual impairment [None]
  - Uveitis [None]
  - Glaucoma [None]
  - Anterior chamber inflammation [None]
  - Vitritis [None]
  - Iridocyclitis [None]
  - Ciliary body degeneration [None]
  - Eye disorder [None]
  - Weight increased [None]
  - Blood cholesterol increased [None]
  - Blood triglycerides increased [None]
  - Emotional distress [None]
  - Deposit eye [None]
  - Eye inflammation [None]
  - Iris hypopigmentation [None]
  - Pigment dispersion syndrome [None]
  - Iris transillumination defect [None]
  - Eye swelling [None]
  - Photophobia [None]
  - Intraocular pressure test [None]
  - Headache [None]
  - Mydriasis [None]
  - Injury [None]
  - Mental disorder [None]
  - Pain [None]
  - Anhedonia [None]
  - Quality of life decreased [None]
